FAERS Safety Report 12707883 (Version 1)
Quarter: 2016Q3

REPORT INFORMATION
  Report Type: Spontaneous
  Country: FR (occurrence: FR)
  Receive Date: 20160901
  Receipt Date: 20160901
  Transmission Date: 20161109
  Serious: Yes (Hospitalization)
  Sender: FDA-Public Use
  Company Number: FR-PFIZER INC-2016399427

PATIENT
  Age: 78 Year
  Sex: Male

DRUGS (13)
  1. EXJADE [Suspect]
     Active Substance: DEFERASIROX
     Indication: POLYCYTHAEMIA VERA
     Dosage: 500 MG, 2X/DAY
     Route: 048
     Dates: start: 201607, end: 20160729
  2. CARDENSIEL [Concomitant]
     Active Substance: BISOPROLOL FUMARATE
  3. ALLOPURINOL. [Concomitant]
     Active Substance: ALLOPURINOL
  4. TRAMADOL. [Concomitant]
     Active Substance: TRAMADOL
  5. TAHOR [Suspect]
     Active Substance: ATORVASTATIN CALCIUM
     Indication: CARDIOVASCULAR EVENT PROPHYLAXIS
     Dosage: 20 MG, 1X/DAY
     Route: 048
     Dates: end: 20160729
  6. RAMIPRIL. [Suspect]
     Active Substance: RAMIPRIL
     Indication: CARDIOVASCULAR EVENT PROPHYLAXIS
     Dosage: 2.5 MG, 1X/DAY
     Route: 048
     Dates: end: 20160729
  7. LEVEMIR [Concomitant]
     Active Substance: INSULIN DETEMIR
  8. BUDESONIDE W/FORMOTEROL [Concomitant]
     Active Substance: BUDESONIDE\FORMOTEROL
  9. KARDEGIC [Concomitant]
     Active Substance: ASPIRIN LYSINE
  10. OMEPRAZOLE. [Concomitant]
     Active Substance: OMEPRAZOLE
  11. FUROSEMIDE. [Suspect]
     Active Substance: FUROSEMIDE
     Indication: CONGESTIVE CARDIOMYOPATHY
     Dosage: 40 MG, 1X/DAY
     Route: 048
     Dates: end: 20160729
  12. THERALENE [Concomitant]
     Active Substance: TRIMEPRAZINE
  13. JAKAFI [Concomitant]
     Active Substance: RUXOLITINIB

REACTIONS (1)
  - Acute kidney injury [Recovering/Resolving]

NARRATIVE: CASE EVENT DATE: 20160727
